FAERS Safety Report 24547702 (Version 2)
Quarter: 2024Q4

REPORT INFORMATION
  Report Type: Spontaneous
  Country: HU (occurrence: HU)
  Receive Date: 20241025
  Receipt Date: 20241104
  Transmission Date: 20250115
  Serious: Yes (Other)
  Sender: ABBVIE
  Company Number: HU-ABBVIE-5974538

PATIENT
  Sex: Male

DRUGS (5)
  1. FLUOROMETHOLONE [Suspect]
     Active Substance: FLUOROMETHOLONE
     Indication: Vernal keratoconjunctivitis
     Route: 047
  2. FLUOROMETHOLONE [Suspect]
     Active Substance: FLUOROMETHOLONE
     Indication: Keratoconus
  3. DEXAMETHASONE [Suspect]
     Active Substance: DEXAMETHASONE
     Indication: Vernal keratoconjunctivitis
     Route: 047
  4. OLOPATADINE [Concomitant]
     Active Substance: OLOPATADINE
     Indication: Vernal keratoconjunctivitis
     Route: 065
  5. TOBRAMYCIN [Concomitant]
     Active Substance: TOBRAMYCIN\TOBRAMYCIN SULFATE
     Indication: Vernal keratoconjunctivitis
     Route: 065

REACTIONS (1)
  - Cataract cortical [Unknown]
